FAERS Safety Report 23257258 (Version 1)
Quarter: 2023Q4

REPORT INFORMATION
  Report Type: Other
  Country: US (occurrence: None)
  Receive Date: 20231204
  Receipt Date: 20231204
  Transmission Date: 20240110
  Serious: Yes (Hospitalization)
  Sender: FDA-Public Use
  Company Number: US-ROCHE-3467756

PATIENT
  Age: 66 Year
  Sex: Male

DRUGS (1)
  1. GAVRETO [Suspect]
     Active Substance: PRALSETINIB
     Indication: Lung neoplasm malignant
     Dosage: 4 CAPSULES DAILY
     Route: 048

REACTIONS (2)
  - Hepatic cancer [Unknown]
  - Brain neoplasm malignant [Unknown]
